FAERS Safety Report 8409552 (Version 2)
Quarter: 2015Q2

REPORT INFORMATION
  Report Type: Spontaneous
  Country: US (occurrence: US)
  Receive Date: 20120216
  Receipt Date: 20150429
  Transmission Date: 20150821
  Serious: Yes (Other)
  Sender: FDA-Public Use
  Company Number: US-ROCHE-794244

PATIENT
  Sex: Male
  Weight: 81.72 kg

DRUGS (1)
  1. ACCUTANE [Suspect]
     Active Substance: ISOTRETINOIN
     Indication: ACNE
     Route: 065
     Dates: start: 1982, end: 1985

REACTIONS (7)
  - Inflammatory bowel disease [Unknown]
  - Gastrooesophageal reflux disease [Unknown]
  - Colon cancer [Unknown]
  - Large intestine polyp [Unknown]
  - Gastrointestinal disorder [Unknown]
  - Hypertension [Unknown]
  - Schizophrenia [Unknown]

NARRATIVE: CASE EVENT DATE: 1987
